FAERS Safety Report 16070457 (Version 2)
Quarter: 2019Q1

REPORT INFORMATION
  Report Type: Spontaneous
  Country: FR (occurrence: FR)
  Receive Date: 20190314
  Receipt Date: 20190327
  Transmission Date: 20190418
  Serious: No
  Sender: FDA-Public Use
  Company Number: FR-TEVA-2019-FR-1025158

PATIENT
  Age: 12 Month
  Sex: Female
  Weight: 8 kg

DRUGS (1)
  1. AMOXICILLINE ACIDE CLAVULANIQUE TEVA 100 MG/12.5 MG/ML [Suspect]
     Active Substance: AMOXICILLIN\CLAVULANIC ACID
     Indication: INFECTION
     Dosage: PRESCRIBED FOR 8 DAYS
     Route: 065
     Dates: start: 20190302

REACTIONS (3)
  - Product label issue [Unknown]
  - Overdose [Unknown]
  - Product preparation error [Unknown]
